FAERS Safety Report 5179123-8 (Version None)
Quarter: 2006Q4

REPORT INFORMATION
  Report Type: 
  Country: None (occurrence: None)
  Receive Date: 20061219
  Receipt Date: 20061206
  Transmission Date: 20070319
  Serious: Yes (Other)
  Sender: FDA-Public Use
  Company Number: PHBS2006GB19059

PATIENT
  Age: 39 Year
  Sex: Female

DRUGS (5)
  1. NEORAL [Suspect]
     Indication: RENAL TRANSPLANT
     Dosage: 150 MG, BID
     Route: 048
  2. AZATHIOPRINE [Concomitant]
     Indication: RENAL TRANSPLANT
     Dosage: 100 MG, QD
  3. NIFEDIPINE [Concomitant]
     Dosage: 60 MG, QD
  4. ONE-ALPHA [Concomitant]
     Dosage: 1 UG, Q48H
  5. FOLIC ACID [Concomitant]
     Dosage: 5 MG, QD

REACTIONS (5)
  - BLOOD CREATININE INCREASED [None]
  - CHOLESTASIS OF PREGNANCY [None]
  - DRUG EXPOSURE DURING PREGNANCY [None]
  - NORMAL NEWBORN [None]
  - PRURITUS [None]
